FAERS Safety Report 9333774 (Version 1)
Quarter: 2013Q2

REPORT INFORMATION
  Report Type: Spontaneous
  Country: US (occurrence: US)
  Receive Date: 20130606
  Receipt Date: 20130606
  Transmission Date: 20140414
  Serious: No
  Sender: FDA-Public Use
  Company Number: US-AMGEN-USASP2013005098

PATIENT
  Age: 73 Year
  Sex: Female

DRUGS (8)
  1. PROLIA [Suspect]
     Indication: OSTEOPOROSIS POSTMENOPAUSAL
     Dosage: UNK
     Dates: start: 20120112
  2. VITAMIN D2 [Concomitant]
  3. PREVACID [Concomitant]
     Dosage: 30 MG, QD
  4. LEXAPRO [Concomitant]
     Dosage: 1 DF, QHS
  5. BUSPAR [Concomitant]
     Dosage: 200 MG, QD
  6. AMLODIPINE [Concomitant]
     Dosage: 5 MG, QHS
  7. CLONIDINE HCL [Concomitant]
     Indication: BLOOD PRESSURE INCREASED
     Dosage: 1 DF, AS NECESSARY
  8. VENTOLIN                           /00139501/ [Concomitant]
     Dosage: UNK UNK, AS NECESSARY
     Route: 055

REACTIONS (9)
  - Urinary tract infection [Not Recovered/Not Resolved]
  - Chromaturia [Unknown]
  - Micturition disorder [Unknown]
  - Neck pain [Recovering/Resolving]
  - Urine odour abnormal [Unknown]
  - Blood glucose increased [Unknown]
  - Blood glucose abnormal [Unknown]
  - Back pain [Recovering/Resolving]
  - Pain in extremity [Unknown]
